FAERS Safety Report 6233166-1 (Version None)
Quarter: 2009Q2

REPORT INFORMATION
  Report Type: 
  Country: None (occurrence: None)
  Receive Date: 20090612
  Receipt Date: 20090601
  Transmission Date: 20091009
  Serious: Yes (Other)
  Sender: FDA-Public Use
  Company Number: 230834K09USA

PATIENT
  Age: 33 Year
  Sex: Female

DRUGS (1)
  1. REBIF [Suspect]
     Indication: MULTIPLE SCLEROSIS
     Dosage: 44 MCG, 3 IN 1 WEEKS, SUBCUTANEOUS
     Route: 058
     Dates: start: 20080204

REACTIONS (5)
  - DENTAL CARIES [None]
  - INJECTION SITE HAEMATOMA [None]
  - MOUTH ULCERATION [None]
  - TOOTH ABSCESS [None]
  - WEIGHT DECREASED [None]
